FAERS Safety Report 9780047 (Version 6)
Quarter: 2014Q2

REPORT INFORMATION
  Report Type: Report from Study
  Country: BE (occurrence: BE)
  Receive Date: 20131223
  Receipt Date: 20140523
  Transmission Date: 20141212
  Serious: Yes (Hospitalization)
  Sender: FDA-Public Use
  Company Number: BE-PFIZER INC-2013360173

PATIENT
  Age: 40 Year
  Sex: Male
  Weight: 80.9 kg

DRUGS (6)
  1. PF-00547659 [Suspect]
     Indication: CROHN^S DISEASE
     Dosage: 75 MG, UNK
     Route: 058
     Dates: start: 20120907, end: 20130222
  2. PF-00547659 [Suspect]
     Dosage: 225 MG, 4 WEEKS
     Route: 058
     Dates: start: 20130329, end: 20131025
  3. MEDROL [Suspect]
     Indication: CROHN^S DISEASE
     Dosage: 16 MG, DAILY
     Route: 048
     Dates: start: 20131014, end: 20131114
  4. PANTOMED [Concomitant]
     Indication: DYSPEPSIA
     Dosage: 40 MG, DAILY
     Route: 048
  5. IMODIUM [Concomitant]
     Indication: DIARRHOEA
     Dosage: 1 TO 2 CAPSULES, DAILY
     Route: 048
  6. OMNIBIONTA [Concomitant]
     Indication: VITAMIN SUPPLEMENTATION
     Dosage: 1 TABLET, DAILY
     Route: 048

REACTIONS (1)
  - Enterocutaneous fistula [Recovered/Resolved with Sequelae]
